FAERS Safety Report 17611022 (Version 2)
Quarter: 2020Q2

REPORT INFORMATION
  Report Type: Spontaneous
  Country: US (occurrence: US)
  Receive Date: 20200401
  Receipt Date: 20200409
  Transmission Date: 20200713
  Serious: Yes (Life-Threatening, Hospitalization)
  Sender: FDA-Public Use
  Company Number: US-ROCHE-2571639

PATIENT
  Age: 26 Year
  Sex: Female
  Weight: 78.3 kg

DRUGS (1)
  1. OCREVUS [Suspect]
     Active Substance: OCRELIZUMAB
     Indication: MULTIPLE SCLEROSIS
     Dosage: LAST DOSE OF OCRELIZUMAB WAS ON 13/SEP/2019
     Route: 042
     Dates: start: 20190829, end: 20190913

REACTIONS (8)
  - Malaise [Unknown]
  - Influenza [Unknown]
  - Respiratory disorder [Unknown]
  - Hepatic enzyme increased [Unknown]
  - Ocular icterus [Unknown]
  - Jaundice [Unknown]
  - Nausea [Unknown]
  - Feeding disorder [Unknown]

NARRATIVE: CASE EVENT DATE: 20190829
